FAERS Safety Report 4321278-9 (Version None)
Quarter: 2004Q1

REPORT INFORMATION
  Report Type: 
  Country: None (occurrence: None)
  Receive Date: 20040322
  Receipt Date: 20030224
  Transmission Date: 20041129
  Serious: No
  Sender: FDA-Public Use
  Company Number: US-BRISTOL-MYERS SQUIBB COMPANY-12197885

PATIENT
  Age: 39 Year
  Sex: Female
  Weight: 68 kg

DRUGS (5)
  1. MONISTAT [Suspect]
     Indication: VAGINAL MYCOSIS
     Route: 067
     Dates: start: 20030220, end: 20030220
  2. VAGISTAT-1 [Suspect]
     Indication: GENITAL PRURITUS FEMALE
     Route: 067
     Dates: start: 20000222, end: 20030222
  3. VAGISTAT-1 [Suspect]
     Indication: VAGINAL DISCHARGE
     Route: 067
     Dates: start: 20000222, end: 20030222
  4. VAGISTAT-1 [Suspect]
     Indication: VAGINAL ODOUR
     Route: 067
     Dates: start: 20000222, end: 20030222
  5. VAGISTAT-1 [Suspect]
     Indication: VAGINAL BURNING SENSATION
     Route: 067
     Dates: start: 20000222, end: 20030222

REACTIONS (1)
  - VAGINAL BURNING SENSATION [None]
